FAERS Safety Report 21853998 (Version 1)
Quarter: 2023Q1

REPORT INFORMATION
  Report Type: Spontaneous
  Country: US (occurrence: None)
  Receive Date: 20230111
  Receipt Date: 20230111
  Transmission Date: 20230418
  Serious: No
  Sender: FDA-Public Use
  Company Number: None

PATIENT
  Sex: Female

DRUGS (10)
  1. EVEROLIMUS [Suspect]
     Active Substance: EVEROLIMUS
     Indication: Breast cancer
     Dosage: 10 MG DAILY ORAL
     Route: 048
     Dates: start: 202210
  2. ACETAMINOPHEN [Concomitant]
     Active Substance: ACETAMINOPHEN
  3. CALCIUM CARBONATE\VITAMIN D [Concomitant]
     Active Substance: CALCIUM CARBONATE\VITAMIN D
  4. COLACE [Concomitant]
     Active Substance: DOCUSATE SODIUM
  5. DULOXETINE [Concomitant]
     Active Substance: DULOXETINE
  6. FAMOTIDINE [Concomitant]
     Active Substance: FAMOTIDINE
  7. IBUPROFEN [Concomitant]
     Active Substance: IBUPROFEN
  8. RESTASIS [Concomitant]
     Active Substance: CYCLOSPORINE
  9. SYNTHROID [Concomitant]
     Active Substance: LEVOTHYROXINE SODIUM
  10. TAMOXIFEN [Concomitant]
     Active Substance: TAMOXIFEN

REACTIONS (2)
  - Pneumonitis [None]
  - Therapy interrupted [None]
